FAERS Safety Report 12392020 (Version 1)
Quarter: 2016Q2

REPORT INFORMATION
  Report Type: Spontaneous
  Country: DE (occurrence: DE)
  Receive Date: 20160523
  Receipt Date: 20160523
  Transmission Date: 20160815
  Serious: Yes (Death)
  Sender: FDA-Public Use
  Company Number: DE-CLINIGEN GROUP PLC/ CLINIGEN HEALTHCARE LTD-DE-CLGN-16-00104

PATIENT
  Age: 3 Decade
  Sex: Male

DRUGS (8)
  1. INTERLEUKIN-2 [Suspect]
     Active Substance: ALDESLEUKIN
     Indication: CENTRAL NERVOUS SYSTEM LYMPHOMA
     Route: 058
  2. DEXAMETHASONE. [Concomitant]
     Active Substance: DEXAMETHASONE
     Indication: PRODUCT USED FOR UNKNOWN INDICATION
  3. FOSCARNET?SODIUM [Suspect]
     Active Substance: FOSCARNET SODIUM
     Indication: PROPHYLAXIS
  4. AZIDOTHYMIDINE [Suspect]
     Active Substance: ZIDOVUDINE
     Indication: CENTRAL NERVOUS SYSTEM LYMPHOMA
     Route: 042
  5. INTERLEUKIN-2 [Suspect]
     Active Substance: ALDESLEUKIN
     Indication: EPSTEIN-BARR VIRUS ASSOCIATED LYMPHOMA
  6. NELFINAVIR [Suspect]
     Active Substance: NELFINAVIR
     Indication: CENTRAL NERVOUS SYSTEM LYMPHOMA
  7. AZIDOTHYMIDINE [Suspect]
     Active Substance: ZIDOVUDINE
     Indication: PRODUCT USED FOR UNKNOWN INDICATION
     Route: 048
  8. LAMIVUDINE. [Suspect]
     Active Substance: LAMIVUDINE
     Indication: HIV INFECTION

REACTIONS (4)
  - Off label use [Unknown]
  - Central nervous system lymphoma [Fatal]
  - Malignant neoplasm progression [Fatal]
  - Product use issue [Unknown]
